FAERS Safety Report 21959216 (Version 2)
Quarter: 2023Q2

REPORT INFORMATION
  Report Type: Report from Study
  Country: US (occurrence: US)
  Receive Date: 20230206
  Receipt Date: 20230529
  Transmission Date: 20230722
  Serious: Yes (Other)
  Sender: FDA-Public Use
  Company Number: US-002147023-NVSC2023US021150

PATIENT
  Sex: Female

DRUGS (1)
  1. COSENTYX [Suspect]
     Active Substance: SECUKINUMAB
     Indication: Psoriatic arthropathy
     Dosage: 150 MG, QMO (EVERY 4 WEEKS)
     Route: 058

REACTIONS (7)
  - Psoriatic arthropathy [Unknown]
  - Nasopharyngitis [Unknown]
  - Erythema [Recovered/Resolved]
  - Asthma [Unknown]
  - Cough [Unknown]
  - Pruritus [Recovered/Resolved]
  - Drug ineffective [Unknown]
